FAERS Safety Report 4284397-1 (Version None)
Quarter: 2004Q1

REPORT INFORMATION
  Report Type: 
  Country: None (occurrence: None)
  Receive Date: 20040203
  Receipt Date: 20040129
  Transmission Date: 20041129
  Serious: Yes (Other)
  Sender: FDA-Public Use
  Company Number: PHBS2004GB01467

PATIENT
  Age: 35 Year
  Sex: Male

DRUGS (3)
  1. TERBINAFINE HCL [Suspect]
     Indication: NAIL TINEA
     Dosage: 250 MG/D
     Route: 048
     Dates: start: 20020701
  2. PREDNISOLONE [Concomitant]
     Route: 048
  3. AZATHIOPRINE [Concomitant]

REACTIONS (4)
  - ANTINUCLEAR ANTIBODY POSITIVE [None]
  - COMPLEMENT FACTOR DECREASED [None]
  - CUTANEOUS LUPUS ERYTHEMATOSUS [None]
  - PENIS DISORDER [None]
